FAERS Safety Report 8700471 (Version 2)
Quarter: 2012Q4

REPORT INFORMATION
  Report Type: 
  Country: US (occurrence: US)
  Receive Date: 20120802
  Receipt Date: 20121204
  Transmission Date: 20130627
  Serious: No
  Sender: FDA-Public Use
  Company Number: US-AMGEN-USASP2012043588

PATIENT
  Age: 67 Year
  Sex: Female
  Weight: 64.85 kg

DRUGS (10)
  1. ENBREL [Suspect]
     Indication: RHEUMATOID ARTHRITIS
     Dosage: 50 mg, qwk
     Route: 058
     Dates: start: 201205
  2. MTX                                /00113801/ [Concomitant]
     Dosage: 2.5 mg, qwk
     Route: 048
  3. FOLINIC ACID [Concomitant]
     Dosage: 5 mg, qd, 12 hours prior to MTX
     Route: 048
  4. TRAZODONE [Concomitant]
     Dosage: 100 mg, qhs
     Route: 048
  5. PREDNISONE [Concomitant]
     Dosage: 10 mg, qd
     Route: 048
  6. VICOPROFEN [Concomitant]
     Dosage: 7.5/200 BID-TID
     Route: 048
  7. MOBIC [Concomitant]
     Dosage: 15 mg, qd, prn
     Route: 048
  8. NEURONTIN [Concomitant]
     Dosage: 400 mg, qd in 2 divided doses
     Route: 048
  9. FOSAMAX [Concomitant]
     Dosage: 70 UNK, qwk
     Route: 048
  10. VITAMIN D /00107901/ [Concomitant]
     Dosage: 50000 unit, qwk

REACTIONS (4)
  - Back pain [Not Recovered/Not Resolved]
  - Rheumatoid arthritis [Unknown]
  - Vitamin D deficiency [Unknown]
  - Oedema [Unknown]
